FAERS Safety Report 8886560 (Version 1)
Quarter: 2012Q4

REPORT INFORMATION
  Report Type: 
  Country: US (occurrence: US)
  Receive Date: 20121105
  Receipt Date: 20121105
  Transmission Date: 20130627
  Serious: Yes (Hospitalization)
  Sender: FDA-Public Use
  Company Number: US-ASTRAZENECA-2012SE82277

PATIENT
  Age: 72 Year
  Sex: Female

DRUGS (8)
  1. ARIMIDEX [Suspect]
     Route: 048
  2. PRILOSEC OTC [Suspect]
     Route: 048
     Dates: start: 20120501, end: 20120625
  3. AMIODIPINE [Concomitant]
  4. ZANTAC [Concomitant]
  5. CITALOPRAM [Concomitant]
  6. ACEBUTOLOL [Concomitant]
  7. AMLODIPINE BESILATE [Concomitant]
  8. LIPITOR [Concomitant]

REACTIONS (6)
  - Renal failure acute [Recovered/Resolved]
  - Pain [Recovered/Resolved]
  - Hypotension [Recovered/Resolved]
  - Fatigue [Recovered/Resolved]
  - Fatigue [Recovered/Resolved]
  - Off label use [Recovered/Resolved]
